FAERS Safety Report 4427383-0 (Version None)
Quarter: 2004Q3

REPORT INFORMATION
  Report Type: 
  Country: None (occurrence: None)
  Receive Date: 20040812
  Receipt Date: 20040728
  Transmission Date: 20050211
  Serious: Yes (Hospitalization)
  Sender: FDA-Public Use
  Company Number: 01P-056-0109437-00

PATIENT
  Age: 17 Year
  Sex: Male

DRUGS (4)
  1. DEPAKINE TABLETS (SODIUM VALPROATE) (SODIUM VALPROATE) (SODIUM VALPROA [Suspect]
     Indication: EPILEPSY
     Dosage: 1500 MG, 1 IN 1 D; PER ORAL
     Route: 048
     Dates: start: 20020403
  2. TOPIRMATE [Suspect]
     Dosage: 600 MG, 1 IN 1 D; PER ORAL
     Route: 048
     Dates: end: 20010430
  3. PHENYTOIN [Concomitant]
  4. CLONAZEPAM [Concomitant]

REACTIONS (6)
  - BLOOD ALKALINE PHOSPHATASE INCREASED [None]
  - DEPRESSED LEVEL OF CONSCIOUSNESS [None]
  - DRUG INTERACTION [None]
  - ELECTROENCEPHALOGRAM ABNORMAL [None]
  - EPILEPSY [None]
  - GAMMA-GLUTAMYLTRANSFERASE INCREASED [None]
